FAERS Safety Report 8961683 (Version 1)
Quarter: 2012Q4

REPORT INFORMATION
  Report Type: 
  Country: AR (occurrence: AR)
  Receive Date: 20121212
  Receipt Date: 20121212
  Transmission Date: 20130627
  Serious: Yes (Other)
  Sender: FDA-Public Use
  Company Number: PHHY2012AR114475

PATIENT
  Sex: Female

DRUGS (2)
  1. DIOVAN [Suspect]
     Indication: HYPERTENSION
     Dosage: 1 DF(80 mg), daily
     Dates: start: 20121102
  2. DIOVAN [Suspect]
     Dosage: UNK UKN(160), UNK

REACTIONS (3)
  - Left ventricular failure [Recovering/Resolving]
  - Eye haemorrhage [Recovering/Resolving]
  - Hypertension [Recovering/Resolving]
